FAERS Safety Report 12778949 (Version 1)
Quarter: 2016Q3

REPORT INFORMATION
  Report Type: Spontaneous
  Country: US (occurrence: US)
  Receive Date: 20160922
  Receipt Date: 20160922
  Transmission Date: 20161109
  Serious: Yes (Hospitalization)
  Sender: FDA-Public Use
  Company Number: None

PATIENT
  Age: 76 Year
  Sex: Female
  Weight: 45.5 kg

DRUGS (7)
  1. PROCHLOPERAZINE [Concomitant]
  2. CALCIUM-CARBONATE-VITAMIN D3 [Concomitant]
  3. ONDANSETRON [Concomitant]
     Active Substance: ONDANSETRON
  4. ASPIRIN. [Concomitant]
     Active Substance: ASPIRIN
  5. EDARBYCLOR [Concomitant]
     Active Substance: AZILSARTAN KAMEDOXOMIL\CHLORTHALIDONE
  6. MONTELUKAST [Concomitant]
     Active Substance: MONTELUKAST SODIUM
  7. VIEKIRA PAK [Suspect]
     Active Substance: DASABUVIR\OMBITASVIR\PARITAPREVIR\RITONAVIR
     Indication: HEPATITIS C
     Dosage: VEKIRA PAK - 1 TABLET - QD - PO; 2 TABLETS QD - PO?
     Route: 048
     Dates: start: 20160209, end: 20160301

REACTIONS (4)
  - Liver function test increased [None]
  - Hypophagia [None]
  - Hyponatraemia [None]
  - Decreased appetite [None]

NARRATIVE: CASE EVENT DATE: 20160301
